FAERS Safety Report 13935526 (Version 1)
Quarter: 2017Q3

REPORT INFORMATION
  Report Type: Spontaneous
  Country: IT (occurrence: IT)
  Receive Date: 20170905
  Receipt Date: 20170905
  Transmission Date: 20171127
  Serious: Yes (Death, Hospitalization, Other)
  Sender: FDA-Public Use
  Company Number: IT-BAYER-2017-160874

PATIENT
  Age: 76 Year
  Sex: Female

DRUGS (4)
  1. SORAFENIB (RAF KINASE INHIBITOR) [Suspect]
     Active Substance: SORAFENIB
     Indication: HEPATOCELLULAR CARCINOMA
     Dosage: 200 MG EVERY OTHER DAY
     Dates: start: 201002
  2. SORAFENIB (RAF KINASE INHIBITOR) [Suspect]
     Active Substance: SORAFENIB
     Indication: HEPATOCELLULAR CARCINOMA
     Dosage: 200 MG EVERY OTHER DAY
  3. SORAFENIB (RAF KINASE INHIBITOR) [Suspect]
     Active Substance: SORAFENIB
     Indication: HEPATOCELLULAR CARCINOMA
     Dosage: 200 MG, QD
  4. SORAFENIB (RAF KINASE INHIBITOR) [Suspect]
     Active Substance: SORAFENIB
     Indication: HEPATOCELLULAR CARCINOMA
     Dosage: 800 MG, QD
     Dates: start: 20080902, end: 20080910

REACTIONS (17)
  - Post procedural infection [None]
  - Femur fracture [None]
  - Hypertension [Recovering/Resolving]
  - Upper limb fracture [None]
  - Varices oesophageal [None]
  - Hepatic failure [None]
  - Alopecia [Recovering/Resolving]
  - Psoriasis [None]
  - Alopecia [Recovering/Resolving]
  - Fall [None]
  - Diarrhoea [Recovering/Resolving]
  - Pain in extremity [Recovering/Resolving]
  - Psoriasis [None]
  - Pain in extremity [None]
  - Pyrexia [Recovering/Resolving]
  - Performance status decreased [Fatal]
  - Skin ulcer [Recovering/Resolving]

NARRATIVE: CASE EVENT DATE: 200809
